FAERS Safety Report 21682205 (Version 2)
Quarter: 2023Q1

REPORT INFORMATION
  Report Type: Other
  Country: US (occurrence: None)
  Receive Date: 20221205
  Receipt Date: 20230125
  Transmission Date: 20230417
  Serious: Yes (Other)
  Sender: FDA-Public Use
  Company Number: US-ROCHE-3227678

PATIENT
  Age: 71 Year
  Sex: Female

DRUGS (1)
  1. HEMLIBRA [Suspect]
     Active Substance: EMICIZUMAB-KXWH
     Indication: Acquired haemophilia
     Dosage: INJECT 300MG (2ML) SUBCUTANEOUSLY EVERY WEEK FOR 3 DOSES AS DIRECTED
     Route: 058

REACTIONS (2)
  - Off label use [Unknown]
  - Deafness [Unknown]
